FAERS Safety Report 4716459-6 (Version None)
Quarter: 2005Q3

REPORT INFORMATION
  Report Type: 
  Country: None (occurrence: None)
  Receive Date: 20050719
  Receipt Date: 20050707
  Transmission Date: 20060218
  Serious: Yes (Hospitalization)
  Sender: FDA-Public Use
  Company Number: IT-JNJFOC-20050701285

PATIENT
  Sex: Male
  Weight: 95 kg

DRUGS (6)
  1. REOPRO [Suspect]
     Dosage: 04.0 ML IN 50 ML DILUENT AT 04.0 ML/H
     Route: 042
  2. REOPRO [Suspect]
     Indication: ACUTE MYOCARDIAL INFARCTION
     Route: 042
  3. RETEPLASE [Suspect]
     Indication: ACUTE MYOCARDIAL INFARCTION
     Route: 042
  4. ASPIRIN [Concomitant]
  5. BETA BLOCKING AGENTS [Concomitant]
  6. HEPARIN [Concomitant]

REACTIONS (2)
  - BRONCHOPNEUMONIA [None]
  - RENAL FAILURE ACUTE [None]
